FAERS Safety Report 9846799 (Version 2)
Quarter: 2014Q1

REPORT INFORMATION
  Report Type: Spontaneous
  Country: US (occurrence: US)
  Receive Date: 20140127
  Receipt Date: 20140127
  Transmission Date: 20141002
  Serious: Yes (Hospitalization, Disabling, Other)
  Sender: FDA-Public Use
  Company Number: US-009507513-1106USA01825

PATIENT
  Sex: Female
  Weight: 65.77 kg

DRUGS (2)
  1. FOSAMAX [Suspect]
     Indication: OSTEOPOROSIS
     Dosage: 70 MG, QW
     Route: 048
     Dates: start: 20060815, end: 20090831
  2. FOSAMAX [Suspect]
     Indication: OSTEOPOROSIS
     Route: 048
     Dates: start: 20080324

REACTIONS (39)
  - Femur fracture [Not Recovered/Not Resolved]
  - Tricuspid valve incompetence [Unknown]
  - Fall [Unknown]
  - Left ventricular hypertrophy [Unknown]
  - Tachycardia [Unknown]
  - Hypoxia [Unknown]
  - Aortic stenosis [Unknown]
  - Aortic valve incompetence [Unknown]
  - Pyrexia [Unknown]
  - Vertigo positional [Unknown]
  - Tendonitis [Unknown]
  - Bursitis [Unknown]
  - Dermatitis allergic [Unknown]
  - Arthritis [Unknown]
  - Activities of daily living impaired [Recovering/Resolving]
  - Cough [Unknown]
  - Pain [Recovering/Resolving]
  - Osteoarthritis [Unknown]
  - Nasopharyngitis [Unknown]
  - Herpes zoster [Unknown]
  - Cardiac murmur [Unknown]
  - Blood glucose increased [Unknown]
  - Exercise tolerance decreased [Unknown]
  - Balance disorder [Unknown]
  - Arthritis [Unknown]
  - Osteopenia [Unknown]
  - Rotator cuff syndrome [Not Recovered/Not Resolved]
  - Varicose vein [Unknown]
  - Renal atrophy [Unknown]
  - Renal cyst [Unknown]
  - Blood triglycerides increased [Unknown]
  - Blood pressure increased [Recovered/Resolved]
  - Anaemia [Unknown]
  - Fatigue [Unknown]
  - Drug hypersensitivity [Unknown]
  - Musculoskeletal pain [Unknown]
  - Musculoskeletal pain [Unknown]
  - Gastrooesophageal reflux disease [Unknown]
  - Drug ineffective [Unknown]
